FAERS Safety Report 7996572-0 (Version None)
Quarter: 2011Q4

REPORT INFORMATION
  Report Type: 
  Country: None (occurrence: None)
  Receive Date: 20111221
  Receipt Date: 20111212
  Transmission Date: 20120403
  Serious: Yes (Hospitalization)
  Sender: FDA-Public Use
  Company Number: US-BIOGENIDEC-2011BI039635

PATIENT
  Age: 49 Year
  Sex: Female

DRUGS (2)
  1. TYSABRI [Suspect]
     Indication: MULTIPLE SCLEROSIS
     Route: 042
     Dates: start: 20101208
  2. AVONEX [Concomitant]
     Indication: MULTIPLE SCLEROSIS
     Route: 030
     Dates: start: 20100802

REACTIONS (7)
  - EMOTIONAL DISTRESS [None]
  - WEIGHT DECREASED [None]
  - MENTAL DISORDER [None]
  - CRYING [None]
  - SECONDARY PROGRESSIVE MULTIPLE SCLEROSIS [None]
  - SUICIDAL IDEATION [None]
  - GAIT DISTURBANCE [None]
